FAERS Safety Report 8749054 (Version 2)
Quarter: 2013Q3

REPORT INFORMATION
  Report Type: Spontaneous
  Country: US (occurrence: None)
  Receive Date: 20120801
  Receipt Date: 20130903
  Transmission Date: 20140515
  Serious: Yes (Hospitalization)
  Sender: FDA-Public Use
  Company Number: 2012PROUSA01695

PATIENT
  Age: 84 Year
  Sex: Male
  Weight: 76.2 kg

DRUGS (13)
  1. PROVENGE [Suspect]
     Indication: PROSTATE CANCER METASTATIC
     Dosage: 250 ML, SINGLE, INTRAVENOUS, 250 ML, SINGLE, INTRAVENOUS, 250 ML, SINGLE, INTRAVENOUS
     Route: 042
     Dates: start: 20120419, end: 20120419
  2. PROVENGE [Suspect]
  3. PROVENGE [Suspect]
  4. ENALAPRIL MALEATE [Concomitant]
  5. COMPAZINE SPANSULE (PROCHLORPERAZINE) [Concomitant]
  6. LUPRON [Concomitant]
  7. ACETAMINOPHEN (PARACETAMOL) [Concomitant]
  8. GLUCOSAMINE/CHONDROITIN (CHRONDROITIN SULFATE, GLUCOSAMINE) [Concomitant]
  9. MULTI-VITAMIN [Concomitant]
  10. METAMUCIL THERAPY FOR REGULARITY [Concomitant]
  11. CLINDAMYCIN (CLINDAMYCIN PHOSPHATE) [Concomitant]
  12. VITAMIN C [Concomitant]
  13. ASPIRIN (ACETYLSALICYLIC ACID) [Concomitant]

REACTIONS (5)
  - Subdural haematoma [None]
  - Gait disturbance [None]
  - Balance disorder [None]
  - Somnolence [None]
  - Eyelid ptosis [None]
